FAERS Safety Report 16315253 (Version 1)
Quarter: 2019Q2

REPORT INFORMATION
  Report Type: Spontaneous
  Country: KR (occurrence: KR)
  Receive Date: 20190515
  Receipt Date: 20190515
  Transmission Date: 20190711
  Serious: Yes (Hospitalization)
  Sender: FDA-Public Use
  Company Number: KR-009507513-1904KOR006065

PATIENT
  Sex: Male

DRUGS (20)
  1. ZIPAN (TRAMADOL HYDROCHLORIDE) [Concomitant]
     Dosage: QUANTITY 1, DAYS 1, FORMULATION: 50MG/ML
     Dates: start: 20190425
  2. KEYTRUDA [Suspect]
     Active Substance: PEMBROLIZUMAB
     Indication: CHOLANGIOCARCINOMA
     Dosage: UNK
     Dates: start: 20190405
  3. MEGACE F [Concomitant]
     Dosage: QUIANTITY 1, DAYS 25
     Dates: start: 20190425
  4. CAFSOL [Concomitant]
     Dosage: QUANTITY 1, DAYS 1
     Dates: start: 20190425
  5. TAMIPOOL [Concomitant]
     Active Substance: VITAMINS
     Dosage: QUANTITY 1, DAYS 1
     Dates: start: 20190425
  6. LIDOCAINE HCL HUONS [Concomitant]
     Dosage: QUANTITY 1, DAYS 1
     Dates: start: 20190426
  7. HEPARIN SODIUM. [Concomitant]
     Active Substance: HEPARIN SODIUM
     Dosage: QUANTITY 1, DAYS 2
     Dates: start: 20190428
  8. BEARSE [Concomitant]
     Active Substance: DIMETHICONE\PANCRELIPASE\URSODIOL
     Dosage: QUANTITY 1, DAYS 2
     Route: 048
     Dates: start: 20190427, end: 20190428
  9. PENIRAMIN [Concomitant]
     Dosage: QUANTITY 1, DAYS 1
     Dates: start: 20190426
  10. MOTILIUM [Concomitant]
     Active Substance: DOMPERIDONE
     Dosage: QUANTITY 1, DAYS 1
     Route: 048
     Dates: start: 20190428
  11. PENIRAMIN [Concomitant]
     Dosage: UNK
     Route: 048
     Dates: start: 20190426, end: 20190429
  12. SODIUM CHLORIDE. [Concomitant]
     Active Substance: SODIUM CHLORIDE
     Dosage: QUANTITY 1, DAYS 2, 100 MILLILTERS
     Dates: start: 20190425, end: 20190426
  13. WINUF PERI [Concomitant]
     Dosage: QUANTITY 1, DAYS 1
     Dates: start: 20190426
  14. KEYTRUDA [Suspect]
     Active Substance: PEMBROLIZUMAB
     Dosage: QUANTITY 2, DAYS 1
     Dates: start: 20190426
  15. GASMOTIN [Concomitant]
     Active Substance: MOSAPRIDE CITRATE
     Dosage: QUANTITY 3, DAYS 25
     Route: 048
     Dates: start: 20190425, end: 20190429
  16. DUROGESIC [Concomitant]
     Active Substance: FENTANYL
     Dosage: QUANTITY 6, DAYS 3 (ALSO REPORTED:25MCG/H 10 SQUARE CENTIMETERS), FORMULATION: PATCH
     Dates: start: 20190425, end: 20190429
  17. PERIOLIMEL N4E [Concomitant]
     Dosage: QUANTITY 1, DAYS 1
     Dates: start: 20190427
  18. CREON [Concomitant]
     Active Substance: PANCRELIPASE AMYLASE\PANCRELIPASE LIPASE\PANCRELIPASE PROTEASE
     Dosage: QUANTITY 3, DAYS 25
     Route: 048
  19. ABSTRAL [Concomitant]
     Active Substance: FENTANYL CITRATE
     Dosage: QUANTITY 4, DAYS 23
     Route: 048
     Dates: start: 20190426
  20. SODIUM CHLORIDE. [Concomitant]
     Active Substance: SODIUM CHLORIDE
     Dosage: QUANTITY 1, DAYS 2, 500 MILLILTERS
     Dates: start: 20190425, end: 20190426

REACTIONS (2)
  - Adverse event [Unknown]
  - Product use in unapproved indication [Unknown]

NARRATIVE: CASE EVENT DATE: 201904
